FAERS Safety Report 8344241-X (Version None)
Quarter: 2012Q2

REPORT INFORMATION
  Report Type: 
  Country: None (occurrence: None)
  Receive Date: 20120402
  Receipt Date: 20120227
  Transmission Date: 20120825
  Serious: Yes (Other)
  Sender: FDA-Public Use
  Company Number: 317289USA

PATIENT
  Sex: Male

DRUGS (7)
  1. CYANOCOBALAMIN [Concomitant]
  2. OXCARBAZEPINE [Concomitant]
  3. LISINOPRIL [Concomitant]
  4. LOPERAMIDE [Concomitant]
  5. VENLAFAXINE [Suspect]
     Dosage: 150 MG (150 MG, 1 IN 1 D)
     Dates: start: 20111001
  6. RANITIDINE [Concomitant]
  7. GABAPENTIN [Concomitant]

REACTIONS (5)
  - FEELING ABNORMAL [None]
  - ANGER [None]
  - DRUG INEFFECTIVE [None]
  - SUICIDAL IDEATION [None]
  - DEPRESSION [None]
